FAERS Safety Report 22316908 (Version 2)
Quarter: 2023Q2

REPORT INFORMATION
  Report Type: Spontaneous
  Country: DE (occurrence: DE)
  Receive Date: 20230513
  Receipt Date: 20230609
  Transmission Date: 20230721
  Serious: Yes (Other)
  Sender: FDA-Public Use
  Company Number: DE-Shilpa Medicare Limited-SML-DE-2023-00521

PATIENT

DRUGS (17)
  1. THIOTEPA [Suspect]
     Active Substance: THIOTEPA
     Indication: Chronic granulomatous disease
     Dosage: 10 MILLIGRAM/SQ. METER
     Route: 065
  2. THIOTEPA [Suspect]
     Active Substance: THIOTEPA
     Indication: Bone marrow conditioning regimen
  3. SIROLIMUS [Suspect]
     Active Substance: SIROLIMUS
     Indication: Chronic granulomatous disease
     Route: 065
  4. CYCLOSPORINE [Suspect]
     Active Substance: CYCLOSPORINE
     Indication: Chronic granulomatous disease
     Route: 065
  5. CYCLOSPORINE [Suspect]
     Active Substance: CYCLOSPORINE
     Indication: Prophylaxis against graft versus host disease
  6. METHOTREXATE [Suspect]
     Active Substance: METHOTREXATE
     Indication: Chronic granulomatous disease
     Route: 065
  7. METHOTREXATE [Suspect]
     Active Substance: METHOTREXATE
     Indication: Prophylaxis against graft versus host disease
  8. FLUDARABINE [Suspect]
     Active Substance: FLUDARABINE PHOSPHATE
     Indication: Chronic granulomatous disease
     Route: 065
  9. FLUDARABINE [Suspect]
     Active Substance: FLUDARABINE PHOSPHATE
     Indication: Bone marrow conditioning regimen
     Route: 065
  10. TACROLIMUS [Suspect]
     Active Substance: TACROLIMUS
     Indication: Chronic granulomatous disease
     Route: 065
  11. MELPHALAN [Suspect]
     Active Substance: MELPHALAN
     Indication: Chronic granulomatous disease
     Route: 065
  12. AZATHIOPRINE [Suspect]
     Active Substance: AZATHIOPRINE
     Indication: Chronic granulomatous disease
     Route: 065
  13. ATG-FRESENIUS [Suspect]
     Active Substance: LAPINE T-LYMPHOCYTE IMMUNE GLOBULIN
     Indication: Chronic granulomatous disease
     Route: 065
  14. ATG-FRESENIUS [Suspect]
     Active Substance: LAPINE T-LYMPHOCYTE IMMUNE GLOBULIN
     Indication: Prophylaxis against graft versus host disease
  15. ABATACEPT [Suspect]
     Active Substance: ABATACEPT
     Indication: Immunomodulatory therapy
     Dosage: 2 WEEKS
     Route: 042
  16. TREOSULFAN [Suspect]
     Active Substance: TREOSULFAN
     Indication: Bone marrow conditioning regimen
     Route: 065
  17. RITUXIMAB [Suspect]
     Active Substance: RITUXIMAB
     Indication: Immunomodulatory therapy
     Dosage: 375 MILLIGRAM/SQ. METER, 2X (RECEIVED TWICE)
     Route: 065

REACTIONS (10)
  - Graft versus host disease in eye [Recovered/Resolved]
  - Drug ineffective [Unknown]
  - Adenovirus infection [Unknown]
  - Human herpesvirus 6 infection [Recovered/Resolved]
  - Pharyngeal ulceration [Recovered/Resolved]
  - Parvovirus B19 infection [Recovered/Resolved]
  - Candida infection [Recovered/Resolved]
  - Cytomegalovirus infection [Recovered/Resolved]
  - Off label use [Unknown]
  - Gastritis [Unknown]
